FAERS Safety Report 23639370 (Version 1)
Quarter: 2024Q1

REPORT INFORMATION
  Report Type: Report from Study
  Country: CH (occurrence: CH)
  Receive Date: 20240316
  Receipt Date: 20240316
  Transmission Date: 20240410
  Serious: Yes (Other)
  Sender: FDA-Public Use
  Company Number: CH-Vifor (International) Inc.-VIT-2024-02257

PATIENT
  Sex: Male

DRUGS (1)
  1. AVACOPAN [Suspect]
     Active Substance: AVACOPAN
     Indication: Product used for unknown indication
     Dosage: 2X3 CAPSULES OF 10 MG PER DAY
     Route: 065
     Dates: start: 2023

REACTIONS (1)
  - Adverse reaction [Unknown]
